FAERS Safety Report 7527926-4 (Version None)
Quarter: 2011Q2

REPORT INFORMATION
  Report Type: 
  Country: None (occurrence: None)
  Receive Date: 20110607
  Receipt Date: 20030307
  Transmission Date: 20111010
  Serious: Yes (Death)
  Sender: FDA-Public Use
  Company Number: PHFR2003GB01072

PATIENT
  Sex: Male

DRUGS (9)
  1. CLOZARIL [Suspect]
     Indication: SCHIZOPHRENIA
     Dosage: 200MG NOCTE/50MG MANE
     Route: 048
     Dates: start: 20020614
  2. AMITRIPTYLINE HCL [Concomitant]
     Dosage: 150 MG, QD
  3. BISACODYL [Concomitant]
     Dosage: 5 MG, BID
  4. LORAZEPAM [Concomitant]
     Dosage: 1 MG, PRN
  5. NEFOPAM HYDROCHLORIDE [Concomitant]
     Dosage: 30 MG, TID
  6. RANITIDINE [Concomitant]
     Dosage: 150 MG, BID
  7. CARBAMAZEPINE [Concomitant]
     Dosage: 100 MG, BID
  8. ACETAMINOPHEN AND CODEINE PHOSPHATE [Concomitant]
  9. LACTULOSE [Concomitant]
     Dosage: 2X5ML SPOONFULSBID

REACTIONS (1)
  - MYOCARDIAL INFARCTION [None]
